FAERS Safety Report 14845446 (Version 1)
Quarter: 2018Q2

REPORT INFORMATION
  Report Type: Spontaneous
  Country: CA (occurrence: CA)
  Receive Date: 20180418
  Receipt Date: 20180418
  Transmission Date: 20180711
  Serious: Yes (Disabling)
  Sender: FDA-Public Use
  Company Number: None

PATIENT
  Age: 36 Year
  Sex: Female
  Weight: 87.75 kg

DRUGS (4)
  1. CIPROFLOXACIN. [Suspect]
     Active Substance: CIPROFLOXACIN
     Indication: URINARY TRACT INFECTION
     Dosage: ?          QUANTITY:14 TABLET(S);?
     Route: 048
     Dates: start: 20160415, end: 20160422
  2. MAGNESIUM [Concomitant]
     Active Substance: MAGNESIUM
  3. PERCOCET [Concomitant]
     Active Substance: ACETAMINOPHEN\OXYCODONE HYDROCHLORIDE
  4. COLLAGEN SUPPLEMENTS [Concomitant]

REACTIONS (4)
  - Arthralgia [None]
  - Joint stiffness [None]
  - Musculoskeletal pain [None]
  - Tendon pain [None]

NARRATIVE: CASE EVENT DATE: 20160415
